FAERS Safety Report 7719251-3 (Version None)
Quarter: 2011Q3

REPORT INFORMATION
  Report Type: 
  Country: None (occurrence: None)
  Receive Date: 20110830
  Receipt Date: 20110824
  Transmission Date: 20111222
  Serious: Yes (Hospitalization, Other)
  Sender: FDA-Public Use
  Company Number: US-BAYER-2011-003126

PATIENT
  Age: 32 Year
  Sex: Female
  Weight: 122 kg

DRUGS (7)
  1. YAZ [Suspect]
     Indication: PREMENSTRUAL SYNDROME
     Dosage: UNK
     Route: 048
     Dates: start: 20000101, end: 20040101
  2. YASMIN [Suspect]
     Indication: MENSTRUATION IRREGULAR
  3. LISINOPRIL [Concomitant]
     Indication: DIABETIC NEPHROPATHY
     Dosage: 5 MG, QD
     Route: 048
  4. YASMIN [Suspect]
     Indication: ORAL CONTRACEPTION
     Dosage: UNK
     Route: 048
     Dates: start: 20000101, end: 20040101
  5. ALLEGRA [Concomitant]
     Dosage: 180 MG, QD
     Route: 048
  6. AVANDAMET [Concomitant]
     Dosage: 1 DF, BID
     Route: 048
  7. YASMIN [Suspect]
     Indication: PREMENSTRUAL SYNDROME

REACTIONS (13)
  - DEEP VEIN THROMBOSIS [None]
  - EMOTIONAL DISTRESS [None]
  - VOMITING [None]
  - GALLBLADDER CHOLESTEROLOSIS [None]
  - ANXIETY [None]
  - NAUSEA [None]
  - JOINT SWELLING [None]
  - DIARRHOEA [None]
  - ARTHRALGIA [None]
  - CHOLECYSTITIS CHRONIC [None]
  - PAIN [None]
  - GALLBLADDER DISORDER [None]
  - ABDOMINAL PAIN [None]
